FAERS Safety Report 8203803-0 (Version None)
Quarter: 2012Q1

REPORT INFORMATION
  Report Type: 
  Country: None (occurrence: None)
  Receive Date: 20120308
  Receipt Date: 20120226
  Transmission Date: 20120608
  Serious: Yes (Hospitalization)
  Sender: FDA-Public Use
  Company Number: DSA_47202_2011

PATIENT
  Sex: Female

DRUGS (3)
  1. QUETIAPINE FUMARATE [Suspect]
     Indication: SUICIDAL IDEATION
     Dosage: 8000 MG, NOT THE PRESCRIBED AMOUNT ORAL
     Route: 048
     Dates: start: 20110718, end: 20110718
  2. BUPROPION HYDROCHLORIDE [Suspect]
     Indication: SUICIDAL IDEATION
     Dosage: (9000 MG NOT THE PRESCRIBED AMOUNT ORAL)
     Route: 048
     Dates: start: 20110718, end: 20110718
  3. CAFFEINE (COFFEINUM COMPRETTE-COFFEINE) [Suspect]
     Indication: SUICIDAL IDEATION
     Dosage: TWO TO FOUR TABLS NOT THE PRESCRIBED AMOUNT
     Route: 048
     Dates: start: 20110718, end: 20110718

REACTIONS (7)
  - COMA [None]
  - GASTROINTESTINAL SOUNDS ABNORMAL [None]
  - SUICIDE ATTEMPT [None]
  - RESPIRATORY FAILURE [None]
  - MULTIPLE DRUG OVERDOSE INTENTIONAL [None]
  - CONVULSION [None]
  - ELECTROCARDIOGRAM QT PROLONGED [None]
